FAERS Safety Report 11092581 (Version 1)
Quarter: 2015Q2

REPORT INFORMATION
  Report Type: Spontaneous
  Country: CN (occurrence: None)
  Receive Date: 20150504
  Receipt Date: 20150504
  Transmission Date: 20150821
  Serious: Yes (Hospitalization)
  Sender: FDA-Public Use
  Company Number: CN2015GSK054506

PATIENT
  Age: 37 Year
  Sex: Male
  Weight: 60 kg

DRUGS (3)
  1. ADEFOVIR DIPIVOXIL. [Concomitant]
     Active Substance: ADEFOVIR DIPIVOXIL
  2. HEPTODIN [Suspect]
     Active Substance: LAMIVUDINE
     Indication: HEPATITIS VIRAL
     Route: 048
     Dates: start: 20140320, end: 20141110
  3. GLUCOSE INJECTION (GLUCOSE) [Suspect]
     Active Substance: DEXTROSE
     Indication: MUSCLE ENZYME INCREASED

REACTIONS (4)
  - Muscle enzyme increased [None]
  - Asthenia [None]
  - Myalgia [None]
  - Chest discomfort [None]

NARRATIVE: CASE EVENT DATE: 20141031
